FAERS Safety Report 8651710 (Version 4)
Quarter: 2012Q4

REPORT INFORMATION
  Report Type: 
  Country: AU (occurrence: AU)
  Receive Date: 20120706
  Receipt Date: 20121126
  Transmission Date: 20130627
  Serious: Yes (Death, Life-Threatening, Hospitalization)
  Sender: FDA-Public Use
  Company Number: PHHY2012AU057054

PATIENT
  Age: 74 Year
  Sex: Male

DRUGS (11)
  1. CLOZARIL [Suspect]
     Indication: SCHIZOPHRENIA
     Dosage: 150 mg, UNK (50 mg mane, 100 mg nocte)
     Route: 048
     Dates: start: 20100323, end: 20120703
  2. PARACETAMOL [Concomitant]
     Dosage: 1 g, QID
     Route: 048
  3. PRAZOSIN [Concomitant]
     Indication: HYPERTENSION
     Dosage: 1 mg, BID (bi-daily)
     Route: 048
  4. VALPROATE SODIUM [Concomitant]
     Indication: SCHIZOPHRENIA
     Dosage: 200 mg, BID (bi-daily)
     Route: 048
     Dates: start: 2010, end: 201207
  5. OMEPRAZOLE [Concomitant]
     Indication: GASTROOESOPHAGEAL REFLUX DISEASE
     Dosage: UNK UKN, UNK
     Route: 048
     Dates: start: 2010, end: 201207
  6. CLOPIDOGREL [Concomitant]
     Indication: CEREBROVASCULAR ACCIDENT
     Dosage: 75 mg, mane
     Route: 048
     Dates: start: 2010, end: 201207
  7. PERINDOPRIL [Concomitant]
     Indication: HYPERTENSION
     Dosage: 2 mg, mane
     Route: 048
     Dates: start: 2010, end: 201207
  8. ATORVASTATIN [Concomitant]
     Indication: HYPERLIPIDAEMIA
     Dosage: 20 mg, nocte
     Route: 048
     Dates: start: 2008, end: 201207
  9. COLOXYL [Concomitant]
  10. DULCOLAX [Concomitant]
     Dosage: UNK UKN, UNK
  11. MOVICOL [Concomitant]
     Dosage: UNK UKN, UNK

REACTIONS (18)
  - Sepsis [Fatal]
  - Metastatic neoplasm [Fatal]
  - Metastases to bone marrow [Fatal]
  - Pancytopenia [Fatal]
  - Anaemia [Fatal]
  - Leukopenia [Fatal]
  - Thrombocytopenia [Fatal]
  - Neutropenia [Fatal]
  - Opportunistic infection [Fatal]
  - Lung infection [Fatal]
  - Hepatitis [Not Recovered/Not Resolved]
  - Jaundice [Not Recovered/Not Resolved]
  - Liver function test abnormal [Not Recovered/Not Resolved]
  - Pruritus [Unknown]
  - Fungal infection [Unknown]
  - Malaise [Unknown]
  - Blood urea increased [Unknown]
  - Blood lactate dehydrogenase increased [Unknown]
